FAERS Safety Report 13508990 (Version 1)
Quarter: 2017Q2

REPORT INFORMATION
  Report Type: Spontaneous
  Country: FR (occurrence: FR)
  Receive Date: 20170503
  Receipt Date: 20170503
  Transmission Date: 20170830
  Serious: Yes (Hospitalization)
  Sender: FDA-Public Use
  Company Number: FR-ASTRAZENECA-2017SE44730

PATIENT
  Age: 44 Year
  Sex: Female

DRUGS (4)
  1. LEVOTHYROX [Concomitant]
     Active Substance: LEVOTHYROXINE
  2. SYMBICORT [Suspect]
     Active Substance: BUDESONIDE\FORMOTEROL FUMARATE DIHYDRATE
     Dosage: 400, 1X2/DAY
     Route: 055
  3. XANAX [Concomitant]
     Active Substance: ALPRAZOLAM
     Dosage: 0.5 MG, 1X3/DAY
  4. VENTOLINE [Concomitant]
     Active Substance: ALBUTEROL
     Dosage: 2 TO 3 PUFFS PER DAY

REACTIONS (5)
  - Cushingoid [Unknown]
  - Dyspnoea [Recovered/Resolved]
  - Intentional product misuse [Unknown]
  - Drug use disorder [Unknown]
  - Anxiety [Recovered/Resolved]
